FAERS Safety Report 21747807 (Version 1)
Quarter: 2022Q4

REPORT INFORMATION
  Report Type: Report from Study
  Country: GB (occurrence: GB)
  Receive Date: 20221219
  Receipt Date: 20221219
  Transmission Date: 20230112
  Serious: Yes (Death)
  Sender: FDA-Public Use
  Company Number: GB-PFIZER INC-PV202200120927

PATIENT

DRUGS (1)
  1. VORICONAZOLE [Interacting]
     Active Substance: VORICONAZOLE
     Indication: Antifungal treatment
     Dosage: 6 MG/KG, 2X/DAY(LOADING DOSE)
     Route: 042

REACTIONS (1)
  - Drug interaction [Fatal]
